FAERS Safety Report 11733746 (Version 1)
Quarter: 2015Q4

REPORT INFORMATION
  Report Type: Spontaneous
  Country: US (occurrence: US)
  Receive Date: 20151110
  Receipt Date: 20151110
  Transmission Date: 20160304
  Serious: No
  Sender: FDA-Public Use
  Company Number: US-ELI_LILLY_AND_COMPANY-US201111005119

PATIENT
  Sex: Female

DRUGS (2)
  1. FORTEO [Suspect]
     Active Substance: TERIPARATIDE
     Dosage: 20 UG, QD
  2. FORTEO [Suspect]
     Active Substance: TERIPARATIDE
     Indication: OSTEOPOROSIS
     Dosage: 20 UG, QD

REACTIONS (15)
  - Feeling abnormal [Recovered/Resolved]
  - Muscle spasms [Unknown]
  - Intentional product misuse [Unknown]
  - Muscle tightness [Recovering/Resolving]
  - Feeling abnormal [Unknown]
  - Discomfort [Recovered/Resolved]
  - Speech disorder [Recovered/Resolved]
  - Eyelid oedema [Not Recovered/Not Resolved]
  - Back pain [Unknown]
  - Eye swelling [Not Recovered/Not Resolved]
  - Injection site erythema [Unknown]
  - Dry eye [Not Recovered/Not Resolved]
  - Arthralgia [Recovered/Resolved]
  - Joint swelling [Unknown]
  - Dizziness [Recovered/Resolved]
